FAERS Safety Report 23290038 (Version 1)
Quarter: 2023Q4

REPORT INFORMATION
  Report Type: Spontaneous
  Country: AT (occurrence: AT)
  Receive Date: 20231212
  Receipt Date: 20231212
  Transmission Date: 20240110
  Serious: Yes (Death, Other)
  Sender: FDA-Public Use
  Company Number: AT-CELLTRION INC.-2023AT022937

PATIENT

DRUGS (2)
  1. INFLIXIMAB [Suspect]
     Active Substance: INFLIXIMAB
     Indication: Immune-mediated gastritis
     Dosage: REMSIMA 500 MG I.V. SINGLE SHOT ON NOV 29 2023.
     Route: 042
     Dates: start: 20231129
  2. CORTISONE [Concomitant]
     Active Substance: CORTISONE

REACTIONS (2)
  - Cerebral haemorrhage [Fatal]
  - Intentional product use issue [Unknown]
